FAERS Safety Report 15974419 (Version 1)
Quarter: 2019Q1

REPORT INFORMATION
  Report Type: Spontaneous
  Country: US (occurrence: US)
  Receive Date: 20190218
  Receipt Date: 20190218
  Transmission Date: 20190418
  Serious: No
  Sender: FDA-Public Use
  Company Number: US-GLAXOSMITHKLINE-US2019027631

PATIENT
  Sex: Female

DRUGS (2)
  1. ARNUITY ELLIPTA [Suspect]
     Active Substance: FLUTICASONE FUROATE
     Indication: ASTHMA
     Dosage: 1 PUFF(S) (100 MCG), QD
     Route: 055
     Dates: start: 201806
  2. ARNUITY ELLIPTA [Suspect]
     Active Substance: FLUTICASONE FUROATE
     Dosage: 1 PUFF(S) (200 MCG), QD
     Route: 055
     Dates: start: 201806

REACTIONS (3)
  - Nasopharyngitis [Recovered/Resolved]
  - Asthma [Unknown]
  - Product storage error [Unknown]
